FAERS Safety Report 5527638-2 (Version None)
Quarter: 2007Q4

REPORT INFORMATION
  Report Type: 
  Country: None (occurrence: None)
  Receive Date: 20071121
  Receipt Date: 20071114
  Transmission Date: 20080405
  Serious: Yes (Other)
  Sender: FDA-Public Use
  Company Number: 2007SP021834

PATIENT
  Age: 56 Year
  Sex: Female
  Weight: 63 kg

DRUGS (2)
  1. CELESTONE [Suspect]
     Indication: BRONCHITIS
     Dosage: 4 MG;QM;IM
     Route: 030
     Dates: start: 20070922, end: 20070928
  2. AMOXICILLIN [Concomitant]

REACTIONS (5)
  - DIZZINESS [None]
  - DYSPNOEA [None]
  - HYPERTENSION [None]
  - OCULAR HYPERAEMIA [None]
  - VERTIGO [None]
